FAERS Safety Report 11032671 (Version 2)
Quarter: 2015Q2

REPORT INFORMATION
  Report Type: Spontaneous
  Country: US (occurrence: US)
  Receive Date: 20150415
  Receipt Date: 20150525
  Transmission Date: 20150821
  Serious: No
  Sender: FDA-Public Use
  Company Number: US-JNJFOC-20150206426

PATIENT
  Age: 35 Year
  Sex: Female
  Weight: 121.11 kg

DRUGS (1)
  1. XARELTO [Suspect]
     Active Substance: RIVAROXABAN
     Indication: THROMBOSIS
     Route: 048
     Dates: start: 20150202

REACTIONS (6)
  - Underdose [Recovered/Resolved]
  - Muscle spasms [Unknown]
  - Underdose [Recovered/Resolved]
  - Headache [Unknown]
  - Tension headache [Unknown]
  - Paraesthesia [Unknown]

NARRATIVE: CASE EVENT DATE: 20150202
